FAERS Safety Report 5836009-0 (Version None)
Quarter: 2008Q3

REPORT INFORMATION
  Report Type: 
  Country: None (occurrence: None)
  Receive Date: 20080806
  Receipt Date: 20080728
  Transmission Date: 20090109
  Serious: Yes (Other)
  Sender: FDA-Public Use
  Company Number: US-PFIZER INC-2008059137

PATIENT
  Sex: Male

DRUGS (10)
  1. LIPITOR [Suspect]
     Indication: BLOOD CHOLESTEROL INCREASED
  2. GABAPENTIN [Concomitant]
  3. LIBRIUM [Concomitant]
  4. ACETYLSALICYLIC ACID SRT [Concomitant]
  5. MULTI-VITAMINS [Concomitant]
  6. ALLERGY MEDICATION [Concomitant]
     Indication: HYPERSENSITIVITY
  7. COLACE [Concomitant]
     Indication: GASTROINTESTINAL DISORDER
  8. NITROGLYCERIN [Concomitant]
  9. NITROGLYCERIN [Concomitant]
     Route: 060
  10. ALEVE [Concomitant]

REACTIONS (2)
  - CONVULSION [None]
  - WRONG TECHNIQUE IN DRUG USAGE PROCESS [None]
